FAERS Safety Report 7471991-X (Version None)
Quarter: 2011Q2

REPORT INFORMATION
  Report Type: 
  Country: None (occurrence: None)
  Receive Date: 20110511
  Receipt Date: 20100908
  Transmission Date: 20111010
  Serious: No
  Sender: FDA-Public Use
  Company Number: A0880550A

PATIENT
  Age: 89 Year
  Sex: Female

DRUGS (1)
  1. TYKERB [Suspect]
     Dosage: 250MG UNKNOWN
     Route: 048
     Dates: start: 20100510, end: 20100908

REACTIONS (1)
  - ADVERSE EVENT [None]
